FAERS Safety Report 8404112-7 (Version None)
Quarter: 2012Q2

REPORT INFORMATION
  Report Type: 
  Country: None (occurrence: None)
  Receive Date: 20120601
  Receipt Date: 20120529
  Transmission Date: 20120825
  Serious: Yes (Other)
  Sender: FDA-Public Use
  Company Number: US-ROCHE-1072102

PATIENT
  Sex: Female
  Weight: 49.94 kg

DRUGS (9)
  1. EVISTA [Concomitant]
     Indication: OSTEOPOROSIS
     Route: 048
     Dates: start: 20090101
  2. ZYRTEC [Concomitant]
     Indication: HYPERSENSITIVITY
     Route: 048
     Dates: start: 20070101
  3. NASONEX [Concomitant]
     Indication: HYPERSENSITIVITY
     Route: 045
     Dates: start: 20110601
  4. ZYRTEC [Concomitant]
     Indication: URTICARIA
  5. CLARITIN [Concomitant]
     Indication: ASTHMA
  6. CLARITIN [Concomitant]
     Indication: URTICARIA
  7. XOLAIR [Suspect]
     Indication: ASTHMA
     Route: 058
     Dates: start: 20040101, end: 20120516
  8. CLARITIN [Concomitant]
     Indication: HYPERSENSITIVITY
     Dosage: 2007 APPROXIMATELY
     Route: 048
     Dates: start: 20070101
  9. ZYRTEC [Concomitant]
     Indication: ASTHMA

REACTIONS (3)
  - FEELING HOT [None]
  - URTICARIA [None]
  - PRURITUS [None]
